FAERS Safety Report 20839976 (Version 1)
Quarter: 2022Q2

REPORT INFORMATION
  Report Type: Spontaneous
  Country: FR (occurrence: FR)
  Receive Date: 20220517
  Receipt Date: 20220517
  Transmission Date: 20220720
  Serious: Yes (Other)
  Sender: FDA-Public Use
  Company Number: FR-MYLANLABS-2022M1035738

PATIENT
  Age: 64 Year
  Sex: Male

DRUGS (2)
  1. TADALAFIL [Suspect]
     Active Substance: TADALAFIL
     Indication: Neoplasm malignant
     Dosage: 5 MILLIGRAM, QD (5 MG DAILY)
  2. TADALAFIL [Suspect]
     Active Substance: TADALAFIL
     Dosage: 10 MILLIGRAM, QD (10 MG DAILY)

REACTIONS (5)
  - Erectile dysfunction [Unknown]
  - Intraocular pressure increased [Unknown]
  - Blood pressure increased [Unknown]
  - Drug ineffective [Unknown]
  - Therapy cessation [Unknown]
